FAERS Safety Report 22035601 (Version 2)
Quarter: 2023Q1

REPORT INFORMATION
  Report Type: Spontaneous
  Country: US (occurrence: US)
  Receive Date: 20230224
  Receipt Date: 20230316
  Transmission Date: 20230418
  Serious: No
  Sender: FDA-Public Use
  Company Number: US-SA-SAC20230217000203

PATIENT

DRUGS (1)
  1. ALDURAZYME [Suspect]
     Active Substance: LARONIDASE
     Indication: Mucopolysaccharidosis
     Dosage: 26.1 MG, QW
     Route: 041
     Dates: start: 20100802

REACTIONS (3)
  - Condition aggravated [Unknown]
  - Gait disturbance [Unknown]
  - Therapeutic response decreased [Unknown]
